FAERS Safety Report 4638129-5 (Version None)
Quarter: 2005Q2

REPORT INFORMATION
  Report Type: 
  Country: None (occurrence: None)
  Receive Date: 20050415
  Receipt Date: 20050402
  Transmission Date: 20051028
  Serious: Yes (Hospitalization, Other)
  Sender: FDA-Public Use
  Company Number: 2005054309

PATIENT
  Sex: Female
  Weight: 61.2356 kg

DRUGS (9)
  1. XANAX [Suspect]
     Indication: DYSKINESIA
  2. XANAX [Suspect]
     Indication: NERVOUSNESS
  3. ARICEPT [Suspect]
     Indication: DEMENTIA
     Dosage: ORAL
     Route: 048
  4. MEMANTINE HCL [Suspect]
     Indication: ILL-DEFINED DISORDER
     Dosage: 20 MG (10 MG, 2 IN 1 D)
     Dates: start: 20040101
  5. ESCITALOPRAM OXALATE [Concomitant]
  6. ASPIRIN [Concomitant]
  7. CALCIUM CITRATE (CALCIUM CITRATE) [Concomitant]
  8. CLOPIDOGREL BISULFATE [Concomitant]
  9. TOCOPHEROL (TOCOPHEROL) [Concomitant]

REACTIONS (15)
  - ANOREXIA [None]
  - BALANCE DISORDER [None]
  - BLOOD URINE PRESENT [None]
  - CLUMSINESS [None]
  - DIARRHOEA [None]
  - DIZZINESS [None]
  - DYSKINESIA [None]
  - FEELING ABNORMAL [None]
  - HYPOTENSION [None]
  - LOSS OF CONSCIOUSNESS [None]
  - SYNCOPE [None]
  - TRANSIENT ISCHAEMIC ATTACK [None]
  - TREMOR [None]
  - URINARY TRACT INFECTION [None]
  - VOMITING [None]
